FAERS Safety Report 9370600 (Version 1)
Quarter: 2013Q2

REPORT INFORMATION
  Report Type: Spontaneous
  Country: US (occurrence: US)
  Receive Date: 20130626
  Receipt Date: 20130626
  Transmission Date: 20140414
  Serious: No
  Sender: FDA-Public Use
  Company Number: US-TEVA-415185USA

PATIENT
  Sex: Male

DRUGS (2)
  1. COPAXONE [Suspect]
     Dates: start: 201209
  2. VITAMINS [Concomitant]

REACTIONS (1)
  - Bleeding time prolonged [Not Recovered/Not Resolved]
